FAERS Safety Report 4444632-3 (Version None)
Quarter: 2004Q3

REPORT INFORMATION
  Report Type: 
  Country: None (occurrence: None)
  Receive Date: 20040902
  Receipt Date: 20040816
  Transmission Date: 20050211
  Serious: Yes (Hospitalization)
  Sender: FDA-Public Use
  Company Number: USA040568299

PATIENT
  Age: 9 Year
  Sex: Female
  Weight: 23 kg

DRUGS (5)
  1. STRATTERA [Suspect]
     Indication: ATTENTION DEFICIT/HYPERACTIVITY DISORDER
     Dosage: 40 MG/1 DAY
     Dates: start: 20040501, end: 20040501
  2. PROZAC [Concomitant]
  3. CLONIDINE HCL [Concomitant]
  4. DEPAKOTE [Concomitant]
  5. CONCERTA [Concomitant]

REACTIONS (6)
  - ABNORMAL BEHAVIOUR [None]
  - AGGRESSION [None]
  - HUMAN BITE [None]
  - MEDICATION ERROR [None]
  - PERSONALITY CHANGE [None]
  - PHYSICAL ASSAULT [None]
